FAERS Safety Report 6715728-8 (Version None)
Quarter: 2010Q2

REPORT INFORMATION
  Report Type: 
  Country: None (occurrence: None)
  Receive Date: 20100507
  Receipt Date: 20100430
  Transmission Date: 20101027
  Serious: Yes (Death)
  Sender: FDA-Public Use
  Company Number: GB-BAXTER-2010BH009405

PATIENT
  Age: 56 Year
  Sex: Male

DRUGS (3)
  1. HEPARIN [Suspect]
     Indication: DRUG USE FOR UNKNOWN INDICATION
     Route: 042
  2. ENOXAPARIN SODIUM [Suspect]
     Indication: THROMBOSIS PROPHYLAXIS
     Route: 065
  3. DANAPAROID [Concomitant]
     Indication: DRUG USE FOR UNKNOWN INDICATION
     Route: 058

REACTIONS (3)
  - HEPARIN-INDUCED THROMBOCYTOPENIA [None]
  - INTESTINAL ISCHAEMIA [None]
  - MESENTERIC ARTERY THROMBOSIS [None]
